FAERS Safety Report 6257106-4 (Version None)
Quarter: 2009Q3

REPORT INFORMATION
  Report Type: 
  Country: None (occurrence: None)
  Receive Date: 20090706
  Receipt Date: 20090629
  Transmission Date: 20100115
  Serious: Yes (Hospitalization)
  Sender: FDA-Public Use
  Company Number: B0581239A

PATIENT
  Age: 66 Year
  Sex: Female

DRUGS (4)
  1. AMOXICILLIN AND CLAVULANATE POTASSIUM [Suspect]
     Indication: DRUG USE FOR UNKNOWN INDICATION
     Dosage: 3G PER DAY
     Route: 048
     Dates: start: 20090101, end: 20090101
  2. NALBUPHINE [Concomitant]
     Dates: start: 20090101
  3. ACUPAN [Concomitant]
     Dates: start: 20090101
  4. MEFOXIN [Concomitant]
     Indication: ANTIBIOTIC THERAPY
     Dates: start: 20090101

REACTIONS (3)
  - CHOLANGITIS [None]
  - CHOLECYSTITIS [None]
  - CHOLESTASIS [None]
